FAERS Safety Report 8975111 (Version 1)
Quarter: 2012Q4

REPORT INFORMATION
  Report Type: 
  Country: DE (occurrence: DE)
  Receive Date: 20121219
  Receipt Date: 20121219
  Transmission Date: 20130627
  Serious: Yes (Death)
  Sender: FDA-Public Use
  Company Number: DE-BAXTER-2012BAX028004

PATIENT

DRUGS (7)
  1. ENDOXAN 1G [Suspect]
     Indication: HUMAN IMMUNODEFICIENCY VIRUS TYPE I INFECTION WITH SECONDARY CANCERS
  2. EXITOP [Suspect]
     Indication: HUMAN IMMUNODEFICIENCY VIRUS TYPE I INFECTION WITH SECONDARY CANCERS
  3. BLEOMYCIN [Suspect]
     Indication: HUMAN IMMUNODEFICIENCY VIRUS TYPE I INFECTION WITH SECONDARY CANCERS
  4. DOXORUBICIN [Suspect]
     Indication: HUMAN IMMUNODEFICIENCY VIRUS TYPE I INFECTION WITH SECONDARY CANCERS
  5. VINCRISTINE [Suspect]
     Indication: HUMAN IMMUNODEFICIENCY VIRUS TYPE I INFECTION WITH SECONDARY CANCERS
  6. PROCARBAZINE [Suspect]
     Indication: HUMAN IMMUNODEFICIENCY VIRUS TYPE I INFECTION WITH SECONDARY CANCERS
  7. PREDNISONE [Suspect]
     Indication: HUMAN IMMUNODEFICIENCY VIRUS TYPE I INFECTION WITH SECONDARY CANCERS

REACTIONS (1)
  - Death [Fatal]
